FAERS Safety Report 10404284 (Version 1)
Quarter: 2014Q1

REPORT INFORMATION
  Report Type: Spontaneous
  Country: US (occurrence: None)
  Receive Date: 20131226
  Receipt Date: 20131226
  Transmission Date: 20141002
  Serious: Yes (Other)
  Sender: FDA-Public Use
  Company Number: PHHY2011US92418

PATIENT
  Age: 54 Year
  Sex: Female

DRUGS (5)
  1. EXFORGE [Suspect]
     Indication: HYPERTENSION
     Dosage: 1 DF
     Route: 048
  2. EXFORGE HCT [Suspect]
     Indication: HYPERTENSION
     Dosage: 1 DF
     Route: 048
  3. ACE INHIBITORS (NO INGREDIENTS/SUBSTANCES) [Concomitant]
  4. BETA BLOCKING AGENTS (NO INGREDIENTS/SUBSTANCES) [Concomitant]
  5. CALCIUM CHANNEL BLOCKERS (NO INGREDIENTS/SUBSTANCES) [Concomitant]

REACTIONS (6)
  - Blood pressure increased [None]
  - Rash macular [None]
  - Arthralgia [None]
  - Hypokinesia [None]
  - Blood potassium decreased [None]
  - Bone pain [None]
